FAERS Safety Report 6823609-4 (Version None)
Quarter: 2010Q3

REPORT INFORMATION
  Report Type: 
  Country: None (occurrence: None)
  Receive Date: 20100708
  Receipt Date: 20060806
  Transmission Date: 20110219
  Serious: No
  Sender: FDA-Public Use
  Company Number: US-PFIZER INC-2006097327

PATIENT
  Sex: Female
  Weight: 84.37 kg

DRUGS (8)
  1. CHANTIX [Suspect]
     Indication: SMOKING CESSATION THERAPY
     Route: 065
     Dates: start: 20060802, end: 20060801
  2. LIPITOR [Concomitant]
     Route: 065
  3. SINGULAIR [Concomitant]
     Route: 065
  4. CLARINEX [Concomitant]
     Route: 065
  5. ALL OTHER THERAPEUTIC PRODUCTS [Concomitant]
     Route: 065
  6. CARBAMAZEPINE [Concomitant]
     Route: 065
  7. NORVASC [Concomitant]
     Route: 065
  8. COMBIVENT [Concomitant]
     Route: 055

REACTIONS (2)
  - INSOMNIA [None]
  - NAUSEA [None]
